FAERS Safety Report 5747503-5 (Version None)
Quarter: 2008Q2

REPORT INFORMATION
  Report Type: 
  Country: None (occurrence: None)
  Receive Date: 20080523
  Receipt Date: 20080512
  Transmission Date: 20081010
  Serious: Yes (Hospitalization, Other)
  Sender: FDA-Public Use
  Company Number: US-ROCHE-563594

PATIENT
  Sex: Female

DRUGS (3)
  1. BONIVA [Suspect]
     Indication: OSTEOPOROSIS
     Route: 048
     Dates: start: 20060708, end: 20060708
  2. ZESTRIL [Concomitant]
     Indication: HYPERTENSION
     Route: 048
  3. 1 CONCOMITANT DRUG [Concomitant]
     Indication: HYPERTENSION
     Dosage: DRUG: WATER PILL

REACTIONS (5)
  - CARPAL TUNNEL SYNDROME [None]
  - CONFUSIONAL STATE [None]
  - PAIN IN EXTREMITY [None]
  - RENAL FAILURE [None]
  - RHABDOMYOLYSIS [None]
